FAERS Safety Report 5618909-X (Version None)
Quarter: 2008Q1

REPORT INFORMATION
  Report Type: 
  Country: None (occurrence: None)
  Receive Date: 20080114
  Receipt Date: 20071109
  Transmission Date: 20080703
  Serious: Yes (Other)
  Sender: FDA-Public Use
  Company Number: 2007087171

PATIENT
  Age: 19 Year
  Sex: Female
  Weight: 57 kg

DRUGS (1)
  1. DEPO-SUBQ PROVERA 104 [Suspect]
     Indication: CONTRACEPTION
     Dosage: (FIRST AND LAST INJECTION), SUBCUTANEOUS
     Route: 058
     Dates: start: 20070802, end: 20070802

REACTIONS (1)
  - INJECTION SITE REACTION [None]
